FAERS Safety Report 19114776 (Version 4)
Quarter: 2025Q3

REPORT INFORMATION
  Report Type: Report from Study
  Country: JP (occurrence: JP)
  Receive Date: 20210408
  Receipt Date: 20250902
  Transmission Date: 20251021
  Serious: Yes (Death, Hospitalization, Other)
  Sender: NOVARTIS
  Company Number: JP-NOVARTISPH-NVSJ2020JP005452

PATIENT
  Age: 56 Year
  Sex: Female
  Weight: 34 kg

DRUGS (4)
  1. KYMRIAH [Suspect]
     Active Substance: TISAGENLECLEUCEL
     Indication: Diffuse large B-cell lymphoma recurrent
     Route: 041
     Dates: start: 20200502, end: 20200502
  2. DOXORUBICIN HYDROCHLORIDE [Suspect]
     Active Substance: DOXORUBICIN HYDROCHLORIDE
     Indication: Product used for unknown indication
     Route: 065
  3. CYCLOPHOSPHAMIDE\FLUOROURACIL\METHOTREXATE [Concomitant]
     Active Substance: CYCLOPHOSPHAMIDE\FLUOROURACIL\METHOTREXATE
     Indication: Hodgkin^s disease lymphocyte depletion type stage unspecified
     Route: 065
     Dates: start: 20200427
  4. FLUDARA [Concomitant]
     Active Substance: FLUDARABINE PHOSPHATE
     Indication: Hodgkin^s disease lymphocyte depletion type stage unspecified
     Route: 065
     Dates: start: 20200427

REACTIONS (13)
  - Diffuse large B-cell lymphoma recurrent [Fatal]
  - Malignant neoplasm progression [Fatal]
  - Cytokine release syndrome [Recovered/Resolved]
  - Pyrexia [Recovering/Resolving]
  - Hypotension [Unknown]
  - Nocturnal dyspnoea [Unknown]
  - Cardiac failure acute [Recovering/Resolving]
  - Dyspnoea at rest [Unknown]
  - Cardiomegaly [Unknown]
  - Pleural effusion [Unknown]
  - Tumour lysis syndrome [Recovered/Resolved]
  - Platelet count decreased [Unknown]
  - Haemoglobin decreased [Unknown]

NARRATIVE: CASE EVENT DATE: 20200502
